FAERS Safety Report 7386420 (Version 2)
Quarter: 2020Q3

REPORT INFORMATION
  Report Type: Spontaneous
  Country: ES (occurrence: ES)
  Receive Date: 20100513
  Receipt Date: 20100525
  Transmission Date: 20201104
  Serious: Yes (Other)
  Sender: FDA-Public Use
  Company Number: PHHY2010ES28465

PATIENT
  Age: 61 Year
  Sex: Female

DRUGS (3)
  1. ZOMETA [Suspect]
     Active Substance: ZOLEDRONIC ACID
     Indication: BREAST NEOPLASM
     Dosage: 4 MG, EVERY 28 DAYS
     Route: 042
     Dates: start: 2009
  2. IBANDRONIC ACID. [Suspect]
     Active Substance: IBANDRONIC ACID
     Dosage: 50 MG DAILY
     Route: 048
     Dates: start: 2009
  3. IBANDRONIC ACID. [Suspect]
     Active Substance: IBANDRONIC ACID
     Indication: BREAST NEOPLASM
     Dosage: 6 MG EVERY 21 DAYS
     Route: 042
     Dates: start: 2007

REACTIONS (1)
  - Osteonecrosis of jaw [Unknown]
